FAERS Safety Report 8140890-2 (Version None)
Quarter: 2012Q1

REPORT INFORMATION
  Report Type: 
  Country: None (occurrence: None)
  Receive Date: 20120214
  Receipt Date: 20120214
  Transmission Date: 20120608
  Serious: Yes (Other)
  Sender: FDA-Public Use
  Company Number: None

PATIENT
  Sex: Female
  Weight: 127.3 kg

DRUGS (1)
  1. SUBOXONE [Suspect]
     Indication: DEPENDENCE
     Dosage: 8/2 MG 2 DAILY SUB-LINGUAL
     Route: 060
     Dates: start: 20120207

REACTIONS (4)
  - GAIT DISTURBANCE [None]
  - TREMOR [None]
  - NAUSEA [None]
  - HYPOAESTHESIA ORAL [None]
